FAERS Safety Report 14665739 (Version 1)
Quarter: 2018Q1

REPORT INFORMATION
  Report Type: Spontaneous
  Country: IL (occurrence: IL)
  Receive Date: 20180321
  Receipt Date: 20180321
  Transmission Date: 20180509
  Serious: Yes (Other)
  Sender: FDA-Public Use
  Company Number: PHHY2018IL045208

PATIENT
  Age: 42 Year
  Sex: Male

DRUGS (1)
  1. ZYKADIA [Suspect]
     Active Substance: CERITINIB
     Indication: LUNG CANCER METASTATIC
     Dosage: UNK
     Route: 065
     Dates: start: 20160229

REACTIONS (12)
  - Deep vein thrombosis [Unknown]
  - Metastases to lymph nodes [Unknown]
  - Abdominal pain [Unknown]
  - Headache [Recovering/Resolving]
  - Fatigue [Unknown]
  - Toxicity to various agents [Unknown]
  - Metastases to central nervous system [Unknown]
  - Lung cancer metastatic [Unknown]
  - Dyspnoea [Unknown]
  - Dizziness [Unknown]
  - Malignant neoplasm progression [Unknown]
  - Diarrhoea [Unknown]

NARRATIVE: CASE EVENT DATE: 20160314
